FAERS Safety Report 16005527 (Version 1)
Quarter: 2019Q1

REPORT INFORMATION
  Report Type: Spontaneous
  Country: FR (occurrence: FR)
  Receive Date: 20190226
  Receipt Date: 20190226
  Transmission Date: 20190418
  Serious: Yes (Other)
  Sender: FDA-Public Use
  Company Number: FR-MYLANLABS-2019M1013921

PATIENT
  Age: 74 Year
  Sex: Female
  Weight: 43 kg

DRUGS (8)
  1. SALBUTAMOL MYLAN [Suspect]
     Active Substance: ALBUTEROL
     Indication: LUNG DISORDER
     Dosage: 4 DOSAGE FORM, QD
     Route: 055
     Dates: start: 20180723, end: 20180808
  2. MIDAZOLAM [Concomitant]
     Active Substance: MIDAZOLAM HYDROCHLORIDE
     Dosage: UNK
  3. PANTOPRAZOLE [Concomitant]
     Active Substance: PANTOPRAZOLE
     Dosage: UNK
  4. SEROPRAM (CITALOPRAM HYDROCHLORIDE) [Suspect]
     Active Substance: CITALOPRAM HYDROCHLORIDE
     Indication: DEPRESSION
     Dosage: 10 MILLIGRAM, QD
     Route: 042
     Dates: start: 20180804
  5. NEFOPAM                            /00396102/ [Concomitant]
     Active Substance: NEFOPAM HYDROCHLORIDE
  6. VERSATIS [Concomitant]
     Active Substance: LIDOCAINE
     Dosage: UNK
  7. LOVENOX [Concomitant]
     Active Substance: ENOXAPARIN SODIUM
     Dosage: UNK
  8. PHLOROGLUCINOL [Concomitant]
     Active Substance: PHLOROGLUCINOL
     Dosage: UNK

REACTIONS (1)
  - Hypokalaemia [Not Recovered/Not Resolved]

NARRATIVE: CASE EVENT DATE: 20180806
